FAERS Safety Report 4717762-6 (Version None)
Quarter: 2005Q3

REPORT INFORMATION
  Report Type: 
  Country: None (occurrence: None)
  Receive Date: 20050715
  Receipt Date: 20050505
  Transmission Date: 20060218
  Serious: Yes (Death)
  Sender: FDA-Public Use
  Company Number: 2005-00997

PATIENT
  Sex: Female

DRUGS (3)
  1. INTEGRILIN [Suspect]
  2. ASPIRIN [Concomitant]
  3. HEPARIN [Concomitant]

REACTIONS (1)
  - RETROPERITONEAL HAEMORRHAGE [None]
